FAERS Safety Report 14977650 (Version 1)
Quarter: 2018Q2

REPORT INFORMATION
  Report Type: Spontaneous
  Country: ES (occurrence: ES)
  Receive Date: 20180606
  Receipt Date: 20180606
  Transmission Date: 20180711
  Serious: Yes (Hospitalization, Other)
  Sender: FDA-Public Use
  Company Number: ES-AUROBINDO-AUR-APL-2017-11431

PATIENT
  Age: 66 Year
  Sex: Female

DRUGS (5)
  1. QUETIAPINE. [Suspect]
     Active Substance: QUETIAPINE
     Dosage: 800 MILLIGRAM
     Route: 048
  2. CLOPIDOGREL [Concomitant]
     Active Substance: CLOPIDOGREL BISULFATE
     Indication: PRODUCT USED FOR UNKNOWN INDICATION
     Dosage: 75 MG, QD
     Route: 065
  3. QUETIAPINE. [Suspect]
     Active Substance: QUETIAPINE
     Indication: BIPOLAR DISORDER
     Dosage: 300 MILLIGRAM, DAILY
     Route: 048
  4. VALPROIC ACID. [Interacting]
     Active Substance: VALPROIC ACID
     Indication: BIPOLAR DISORDER
     Dosage: 1500 MG/DAY
     Route: 065
  5. VALPROIC ACID. [Interacting]
     Active Substance: VALPROIC ACID
     Dosage: 1 G, DAILY
     Route: 065

REACTIONS (19)
  - Depressed level of consciousness [Recovered/Resolved]
  - Muscle rigidity [Recovered/Resolved]
  - Somnolence [Recovered/Resolved]
  - Parkinsonism [Recovered/Resolved]
  - Cognitive disorder [Recovered/Resolved]
  - Incontinence [Recovered/Resolved]
  - Disorientation [Recovered/Resolved]
  - Memory impairment [Recovered/Resolved]
  - Insomnia [Unknown]
  - Drug interaction [Recovered/Resolved]
  - Psychomotor hyperactivity [Unknown]
  - Bradykinesia [Recovered/Resolved]
  - Euphoric mood [Unknown]
  - Tremor [Recovered/Resolved]
  - Psychotic disorder [Unknown]
  - Hemiparesis [Recovered/Resolved]
  - Irritability [Unknown]
  - Bedridden [Recovered/Resolved]
  - Bradyphrenia [Recovered/Resolved]

NARRATIVE: CASE EVENT DATE: 200708
